FAERS Safety Report 5026216-1 (Version None)
Quarter: 2006Q2

REPORT INFORMATION
  Report Type: 
  Country: None (occurrence: None)
  Receive Date: 20060608
  Receipt Date: 20060531
  Transmission Date: 20061013
  Serious: Yes (Death, Other)
  Sender: FDA-Public Use
  Company Number: 2006007461

PATIENT
  Age: 28 Year
  Sex: Male

DRUGS (3)
  1. RELPAX [Suspect]
     Indication: MIGRAINE WITHOUT AURA
     Dosage: UNKNOWN, ORAL
     Route: 048
  2. ALL OTHER THERAPEUTIC PRODUCTS (ALL OTHER THERAPEUTIC PRODUCTS) [Concomitant]
  3. ANTIHYPERTENSIVES (ANTIHYPERTENSIVES) [Concomitant]

REACTIONS (4)
  - ECHOCARDIOGRAM ABNORMAL [None]
  - HYPOKINESIA [None]
  - MUSCLE SPASMS [None]
  - MYOCARDIAL INFARCTION [None]
